FAERS Safety Report 10155716 (Version 1)
Quarter: 2014Q2

REPORT INFORMATION
  Report Type: Spontaneous
  Country: ES (occurrence: ES)
  Receive Date: 20140506
  Receipt Date: 20140506
  Transmission Date: 20141212
  Serious: Yes (Life-Threatening, Hospitalization)
  Sender: FDA-Public Use
  Company Number: ES-DSJP-DSE-2014-106614

PATIENT
  Sex: 0

DRUGS (1)
  1. SEVIKAR HCT 40 MG/5 MG/12,5 MG [Suspect]
     Indication: PRODUCT USED FOR UNKNOWN INDICATION
     Dosage: 40/5/12.5 MG, QD
     Route: 048
     Dates: start: 2012, end: 20140410

REACTIONS (3)
  - Diarrhoea [Unknown]
  - Dehydration [Unknown]
  - Renal failure acute [Unknown]
